FAERS Safety Report 11051876 (Version 1)
Quarter: 2015Q2

REPORT INFORMATION
  Report Type: Spontaneous
  Country: LU (occurrence: LU)
  Receive Date: 20150421
  Receipt Date: 20150421
  Transmission Date: 20150821
  Serious: Yes (Hospitalization)
  Sender: FDA-Public Use
  Company Number: LU-PFIZER INC-2015133744

PATIENT
  Age: 58 Year

DRUGS (2)
  1. XYLOCAIN /00033401/ [Suspect]
     Active Substance: LIDOCAINE
     Indication: INTERVERTEBRAL DISC DEGENERATION
     Dosage: UNK
     Route: 024
  2. FELDENE [Suspect]
     Active Substance: PIROXICAM
     Indication: INTERVERTEBRAL DISC DEGENERATION
     Dosage: UNK
     Route: 024

REACTIONS (2)
  - Paraplegia [Unknown]
  - Incorrect route of drug administration [Unknown]
